FAERS Safety Report 5889936-2 (Version None)
Quarter: 2008Q3

REPORT INFORMATION
  Report Type: 
  Country: None (occurrence: None)
  Receive Date: 20080919
  Receipt Date: 20080916
  Transmission Date: 20090109
  Serious: Yes (Hospitalization)
  Sender: FDA-Public Use
  Company Number: PHEH2008US07369

PATIENT
  Sex: Male
  Weight: 51.6 kg

DRUGS (3)
  1. EXJADE [Suspect]
     Indication: IRON OVERLOAD
     Dosage: 1500 MG, QD
     Route: 048
     Dates: start: 20060228, end: 20080820
  2. TYLENOL W/ CODEINE [Concomitant]
     Dosage: UNK
  3. SUDAFED 12 HOUR [Concomitant]
     Dosage: UNK

REACTIONS (5)
  - ABNORMAL BEHAVIOUR [None]
  - AGGRESSION [None]
  - HALLUCINATION, AUDITORY [None]
  - PSYCHOTIC BEHAVIOUR [None]
  - UNRESPONSIVE TO STIMULI [None]
